FAERS Safety Report 7513139-9 (Version None)
Quarter: 2011Q2

REPORT INFORMATION
  Report Type: 
  Country: None (occurrence: None)
  Receive Date: 20110531
  Receipt Date: 20110524
  Transmission Date: 20111010
  Serious: Yes (Life-Threatening, Hospitalization, Disabling, Other)
  Sender: FDA-Public Use
  Company Number: US-MERCK-1105USA03680

PATIENT
  Age: 68 Year
  Sex: Male

DRUGS (2)
  1. JANUMET [Suspect]
     Indication: TYPE 2 DIABETES MELLITUS
     Route: 048
     Dates: start: 20110101, end: 20110101
  2. METFORMIN [Concomitant]
     Route: 065
     Dates: end: 20110101

REACTIONS (5)
  - RESPIRATORY FAILURE [None]
  - DYSURIA [None]
  - CARDIAC FAILURE CONGESTIVE [None]
  - METABOLIC ACIDOSIS [None]
  - CARDIAC ARREST [None]
